FAERS Safety Report 11785004 (Version 2)
Quarter: 2016Q1

REPORT INFORMATION
  Report Type: Spontaneous
  Country: BE (occurrence: BE)
  Receive Date: 20151130
  Receipt Date: 20160201
  Transmission Date: 20160525
  Serious: Yes (Death, Other)
  Sender: FDA-Public Use
  Company Number: BE-SUN PHARMACEUTICAL INDUSTRIES LTD-2015R1-106860

PATIENT
  Age: 58 Year
  Sex: Male

DRUGS (1)
  1. TEMOZOLOMIDE. [Suspect]
     Active Substance: TEMOZOLOMIDE
     Indication: GLIOBLASTOMA MULTIFORME
     Dosage: 100 MG/M2, DAILY FOR 21 CONSECUTIVE DAYS OF A 28-DAY CYCLE
     Route: 048
     Dates: end: 201112

REACTIONS (5)
  - Non-Hodgkin^s lymphoma [Unknown]
  - Eye infection [Unknown]
  - Death [Fatal]
  - Neutropenia [Unknown]
  - Pneumonia [Unknown]
